FAERS Safety Report 21375159 (Version 3)
Quarter: 2022Q4

REPORT INFORMATION
  Report Type: Report from Study
  Country: ES (occurrence: None)
  Receive Date: 20220926
  Receipt Date: 20221013
  Transmission Date: 20230113
  Serious: Yes (Hospitalization)
  Sender: FDA-Public Use
  Company Number: ES-Eisai Medical Research-EC-2022-124319

PATIENT
  Age: 69 Year
  Sex: Female
  Weight: 79 kg

DRUGS (20)
  1. LENVATINIB [Suspect]
     Active Substance: LENVATINIB
     Indication: Small cell lung cancer extensive stage
     Dosage: STARTING DOSE AT 20 MILLIGRAM (FLUCTUATED DOSAGE)
     Route: 048
     Dates: start: 20220503, end: 20220908
  2. QUAVONLIMAB [Suspect]
     Active Substance: QUAVONLIMAB
     Indication: Small cell lung cancer extensive stage
     Dosage: 425 MG MK-1308A (CONTAINS 25 MG QUAVONLIMAB AND 400 MG PEMBROLIZUMAB
     Route: 041
     Dates: start: 20220503, end: 20220728
  3. SIMVASTATIN [Concomitant]
     Active Substance: SIMVASTATIN
     Dates: start: 202204
  4. IBUPROFEN [Concomitant]
     Active Substance: IBUPROFEN
     Dates: start: 202204
  5. CALCIFEDIOL [Concomitant]
     Active Substance: CALCIFEDIOL
     Dates: start: 202204
  6. ATROVENT [Concomitant]
     Active Substance: IPRATROPIUM BROMIDE
     Dates: start: 202204
  7. LORAZEPAM [Concomitant]
     Active Substance: LORAZEPAM
     Dates: start: 202204
  8. HYDROCHLOROTHIAZIDE [Concomitant]
     Active Substance: HYDROCHLOROTHIAZIDE
     Dates: start: 20220603
  9. ALBUTEROL [Concomitant]
     Active Substance: ALBUTEROL
     Dates: start: 20220614
  10. EUTHYROX [Concomitant]
     Active Substance: LEVOTHYROXINE SODIUM
     Dates: start: 20220614
  11. BUDESONIDE [Concomitant]
     Active Substance: BUDESONIDE
     Dates: start: 20220614
  12. CODEINE [Concomitant]
     Active Substance: CODEINE
     Dates: start: 20220614
  13. PREDNICARBATE [Concomitant]
     Active Substance: PREDNICARBATE
     Dates: start: 20220719
  14. NYSTATIN [Concomitant]
     Active Substance: NYSTATIN
     Dosage: RINSE
     Dates: start: 20220719
  15. PREDNISONE [Concomitant]
     Active Substance: PREDNISONE
     Dates: start: 20220719
  16. OMEPRAZOLE [Concomitant]
     Active Substance: OMEPRAZOLE
     Dates: start: 20220728
  17. ZALDIAR [Concomitant]
     Active Substance: ACETAMINOPHEN\TRAMADOL HYDROCHLORIDE
     Dates: start: 20220818
  18. OLMESARTAN MEDOXOMIL [Concomitant]
     Active Substance: OLMESARTAN MEDOXOMIL
     Dates: start: 20220818
  19. CARBOPLATIN [Concomitant]
     Active Substance: CARBOPLATIN
     Dates: start: 20220909
  20. PEMBROLIZUMAB [Suspect]
     Active Substance: PEMBROLIZUMAB

REACTIONS (1)
  - Malignant neoplasm progression [Recovering/Resolving]

NARRATIVE: CASE EVENT DATE: 20220919
